APPROVED DRUG PRODUCT: CORTICOTROPIN
Active Ingredient: CORTICOTROPIN
Strength: 40 UNITS/VIAL
Dosage Form/Route: INJECTABLE;INJECTION
Application: A088772 | Product #001
Applicant: WATSON LABORATORIES INC
Approved: Nov 21, 1984 | RLD: No | RS: No | Type: DISCN